FAERS Safety Report 11666013 (Version 1)
Quarter: 2015Q4

REPORT INFORMATION
  Report Type: Spontaneous
  Country: US (occurrence: US)
  Receive Date: 20151027
  Receipt Date: 20151027
  Transmission Date: 20160304
  Serious: No
  Sender: FDA-Public Use
  Company Number: US-ASTRAZENECA-2015SE99860

PATIENT
  Sex: Female
  Weight: 68 kg

DRUGS (1)
  1. BYETTA [Suspect]
     Active Substance: EXENATIDE
     Indication: TYPE 2 DIABETES MELLITUS
     Dosage: 250 MCG / 1.2 ML ONCE A WEEK
     Route: 058

REACTIONS (4)
  - Nausea [Unknown]
  - Product quality issue [Unknown]
  - Cystitis [Unknown]
  - Intentional device misuse [Unknown]
